FAERS Safety Report 16303185 (Version 2)
Quarter: 2019Q3

REPORT INFORMATION
  Report Type: Spontaneous
  Country: US (occurrence: US)
  Receive Date: 20190513
  Receipt Date: 20190927
  Transmission Date: 20191004
  Serious: Yes (Life-Threatening, Hospitalization, Other)
  Sender: FDA-Public Use
  Company Number: US-SA-2019SA128252

PATIENT
  Age: 40 Year
  Sex: Male
  Weight: 83.6 kg

DRUGS (9)
  1. THYMOGLOBULIN [Suspect]
     Active Substance: LAPINE T-LYMPHOCYTE IMMUNE GLOBULIN
     Indication: RENAL TRANSPLANT
     Dosage: 1.5 MG/KG, QD
     Route: 042
     Dates: start: 20190720, end: 20190722
  2. METHYLPREDNISOLONE. [Concomitant]
     Active Substance: METHYLPREDNISOLONE
     Indication: IMMUNOSUPPRESSANT DRUG THERAPY
     Dosage: 500 MG, 1X
     Route: 042
     Dates: start: 20190720, end: 20190720
  3. PROPOFOL. [Concomitant]
     Active Substance: PROPOFOL
     Indication: ANAESTHESIA
     Dosage: UNK UNK, PRN, 200
     Route: 042
     Dates: start: 20190720, end: 20190720
  4. NEOSTIGMINE. [Concomitant]
     Active Substance: NEOSTIGMINE METHYLSULFATE
     Indication: ANAESTHESIA
     Dosage: 3 MG, PRN
     Route: 042
     Dates: start: 20190720, end: 20190720
  5. UNASYN [SULTAMICILLIN] [Concomitant]
     Active Substance: SULTAMICILLIN
     Indication: PROPHYLAXIS
     Dosage: 3 G, 1X
     Route: 042
     Dates: start: 20190720, end: 20190720
  6. DEXAMETHASONE. [Concomitant]
     Active Substance: DEXAMETHASONE
     Indication: ANAESTHESIA
     Dosage: 4 MG, 1X
     Route: 042
     Dates: start: 20190720, end: 20190720
  7. GLYCOPYRROLATE [GLYCOPYRRONIUM BROMIDE] [Concomitant]
     Active Substance: GLYCOPYRROLATE
     Indication: ANAESTHESIA
     Dosage: 0.4 MG, PRN
     Route: 042
     Dates: start: 20190720, end: 20190720
  8. FUROSEMIDE. [Concomitant]
     Active Substance: FUROSEMIDE
     Indication: POLYURIA
     Dosage: 50 MG, 1X
     Route: 042
     Dates: start: 20190720, end: 20190720
  9. FENTANYL. [Concomitant]
     Active Substance: FENTANYL
     Indication: ANAESTHESIA
     Dosage: 50 MG, PRN
     Route: 042
     Dates: start: 20190720, end: 20190720

REACTIONS (2)
  - Hypoxia [Recovered/Resolved]
  - Post procedural haemorrhage [Recovered/Resolved]

NARRATIVE: CASE EVENT DATE: 20190720
